FAERS Safety Report 4340310-X (Version None)
Quarter: 2004Q1

REPORT INFORMATION
  Report Type: 
  Country: None (occurrence: None)
  Receive Date: 20040331
  Receipt Date: 20040315
  Transmission Date: 20041129
  Serious: Yes (Death, Life-Threatening, Hospitalization)
  Sender: FDA-Public Use
  Company Number: 213825

PATIENT
  Age: 56 Year
  Sex: Male
  Weight: 48.5 kg

DRUGS (9)
  1. NOVOSEVEN [Suspect]
     Indication: LIVER DISORDER
     Dosage: 100 UG/KG, SINGLE, INTRAVENOUS
     Route: 042
     Dates: start: 20020207, end: 20020207
  2. PREDNISOLONE [Concomitant]
  3. ATROPINE [Concomitant]
  4. CARULON [Concomitant]
  5. ALBUMIN (HUMAN) [Concomitant]
  6. PHYTONADIONE [Concomitant]
  7. DICYNONE (ETAMSILATE) [Concomitant]
  8. PARA-AMINOMETHYLBENZOIC ACID [Concomitant]
  9. DEXTRAN 40 (DEXTRAN 40) [Concomitant]

REACTIONS (7)
  - BILE DUCT STONE [None]
  - DIALYSIS [None]
  - HEPATIC FAILURE [None]
  - HEPATORENAL SYNDROME [None]
  - MESENTERIC VEIN THROMBOSIS [None]
  - RENAL FAILURE [None]
  - SURGICAL PROCEDURE REPEATED [None]
